FAERS Safety Report 24938577 (Version 1)
Quarter: 2025Q1

REPORT INFORMATION
  Report Type: Spontaneous
  Country: US (occurrence: None)
  Receive Date: 20250206
  Receipt Date: 20250206
  Transmission Date: 20250408
  Serious: Yes (Other)
  Sender: FDA-CTU
  Company Number: None

PATIENT
  Age: 29 Year
  Sex: Female
  Weight: 67.5 kg

DRUGS (1)
  1. ACCUTANE [Suspect]
     Active Substance: ISOTRETINOIN
     Indication: Acne
     Dates: start: 20221101, end: 20231101

REACTIONS (4)
  - Arthralgia [None]
  - Gait disturbance [None]
  - Gait disturbance [None]
  - Loss of libido [None]

NARRATIVE: CASE EVENT DATE: 20240105
